FAERS Safety Report 9432485 (Version 2)
Quarter: 2013Q3

REPORT INFORMATION
  Report Type: Spontaneous
  Country: NL (occurrence: NL)
  Receive Date: 20130731
  Receipt Date: 20130813
  Transmission Date: 20140515
  Serious: Yes (Other)
  Sender: FDA-Public Use
  Company Number: NL-PFIZER INC-2013219784

PATIENT
  Age: 53 Year
  Sex: Female

DRUGS (3)
  1. CISPLATIN [Suspect]
     Indication: GESTATIONAL TROPHOBLASTIC TUMOUR
     Dosage: 20 MG/M2, CYCLIC (DAYS 1-5)
     Route: 042
  2. ETOPOSIDE [Suspect]
     Indication: GESTATIONAL TROPHOBLASTIC TUMOUR
     Dosage: 100 MG/M2, CYCLIC (DAYS 1-5)
     Route: 042
  3. BLEOMYCIN [Suspect]
     Indication: GESTATIONAL TROPHOBLASTIC TUMOUR
     Dosage: 30 MG, WEEKLY, FROM DAY 2
     Route: 042

REACTIONS (2)
  - Polyneuropathy [Recovered/Resolved]
  - Bone marrow toxicity [Recovered/Resolved]
